FAERS Safety Report 8121857-7 (Version None)
Quarter: 2011Q4

REPORT INFORMATION
  Report Type: 
  Country: None (occurrence: None)
  Receive Date: 20111227
  Receipt Date: 20111007
  Transmission Date: 20120403
  Serious: No
  Sender: FDA-Public Use
  Company Number: PHEH2011US06216

PATIENT
  Age: 42 Year
  Sex: Female

DRUGS (1)
  1. GILENYA [Suspect]
     Dosage: 0.5 MG, QD, ORAL
     Route: 048
     Dates: start: 20111004

REACTIONS (7)
  - HEADACHE [None]
  - LETHARGY [None]
  - CHILLS [None]
  - ASTHENIA [None]
  - INSOMNIA [None]
  - HOT FLUSH [None]
  - SOMNOLENCE [None]
